FAERS Safety Report 4554707-6 (Version None)
Quarter: 2004Q4

REPORT INFORMATION
  Report Type: 
  Country: None (occurrence: None)
  Receive Date: 20041227
  Receipt Date: 20041027
  Transmission Date: 20050328
  Serious: No
  Sender: FDA-Public Use
  Company Number: 2004-0007674

PATIENT
  Age: 45 Year
  Sex: Male

DRUGS (5)
  1. VIREAD [Suspect]
     Dosage: 300 MG, 1 IN 1 D
     Dates: start: 20040701
  2. REYATAZ [Concomitant]
  3. EPIVER (LAMIVUDINE) [Concomitant]
  4. ZIAGEN [Concomitant]
  5. NORVIR [Concomitant]

REACTIONS (1)
  - ALOPECIA [None]
